FAERS Safety Report 6577438-X (Version None)
Quarter: 2010Q1

REPORT INFORMATION
  Report Type: 
  Country: None (occurrence: None)
  Receive Date: 20100211
  Receipt Date: 20090907
  Transmission Date: 20100710
  Serious: Yes (Other)
  Sender: FDA-Public Use
  Company Number: ES-ELI_LILLY_AND_COMPANY-ES200909001821

PATIENT
  Age: 38 Year
  Sex: Female
  Weight: 77 kg

DRUGS (3)
  1. ZYPREXA [Suspect]
     Indication: DEPRESSION
     Dosage: 7.5 MG, DAILY (1/D)
     Route: 048
     Dates: start: 20080601, end: 20090401
  2. ZYPREXA [Suspect]
     Dosage: 5 MG, DAILY (1/D)
     Dates: start: 20090401, end: 20090701
  3. DOBUPAL [Concomitant]
     Indication: DEPRESSION
     Dosage: 50 MG, DAILY (1/D)
     Route: 048
     Dates: start: 20080601, end: 20090701

REACTIONS (4)
  - HYPOCHROMIC ANAEMIA [None]
  - OBESITY [None]
  - OFF LABEL USE [None]
  - PLATELET COUNT DECREASED [None]
